FAERS Safety Report 13267819 (Version 6)
Quarter: 2017Q3

REPORT INFORMATION
  Report Type: Spontaneous
  Country: KR (occurrence: KR)
  Receive Date: 20170224
  Receipt Date: 20170831
  Transmission Date: 20171127
  Serious: Yes (Hospitalization, Other)
  Sender: FDA-Public Use
  Company Number: KR-009507513-1702KOR009845

PATIENT
  Age: 70 Year
  Sex: Male
  Weight: 68 kg

DRUGS (28)
  1. CISPLAN [Concomitant]
     Active Substance: CISPLATIN
     Indication: RECTAL CANCER
     Dosage: 108 MG, ONCE; CYCLE 1 (STRENGTH: 50MG/100ML)
     Route: 042
     Dates: start: 20161110, end: 20161110
  2. DEXAMETHASONE SODIUM PHOSPHATE. [Concomitant]
     Active Substance: DEXAMETHASONE SODIUM PHOSPHATE
     Dosage: 12 MG, ONCE (STRENGTH: 5 MG/ML)
     Route: 042
     Dates: start: 20161208, end: 20161208
  3. DEXAMETHASONE. [Concomitant]
     Active Substance: DEXAMETHASONE
     Indication: PROPHYLAXIS OF NAUSEA AND VOMITING
     Dosage: 4 MG, TWICE DAILY
     Route: 048
     Dates: start: 20161111, end: 20161113
  4. SANCUSO [Concomitant]
     Active Substance: GRANISETRON
     Dosage: 1 ^EA^, DAILY (PATCH: 80.2X66.6 MM2)
     Route: 062
     Dates: start: 20161228, end: 20170103
  5. EMEND (FOSAPREPITANT DIMEGLUMINE) [Suspect]
     Active Substance: FOSAPREPITANT DIMEGLUMINE
     Indication: PROPHYLAXIS OF NAUSEA AND VOMITING
     Dosage: 150 MG, ONCE
     Route: 042
     Dates: start: 20161110, end: 20161110
  6. DEXAMETHASONE SODIUM PHOSPHATE. [Concomitant]
     Active Substance: DEXAMETHASONE SODIUM PHOSPHATE
     Dosage: 12 MG, ONCE (STRENGTH: 5 MG/ML)
     Route: 042
     Dates: start: 20161229, end: 20161229
  7. SANCUSO [Concomitant]
     Active Substance: GRANISETRON
     Indication: PROPHYLAXIS OF NAUSEA AND VOMITING
     Dosage: 1 ^EA^, DAILY (PATCH: 80.2X66.6 MM2)
     Route: 062
     Dates: start: 20161109, end: 20161115
  8. LASIX [Concomitant]
     Active Substance: FUROSEMIDE
     Indication: PROPHYLAXIS
     Dosage: 20 MG, ONCE; STRENGTH: 20MG/2ML
     Route: 042
     Dates: start: 20161110, end: 20161110
  9. DEXAMETHASONE SODIUM PHOSPHATE. [Concomitant]
     Active Substance: DEXAMETHASONE SODIUM PHOSPHATE
     Indication: PROPHYLAXIS OF NAUSEA AND VOMITING
     Dosage: 12 MG, ONCE (STRENGTH: 5 MG/ML)
     Route: 042
     Dates: start: 20161110, end: 20161110
  10. CURAN [Concomitant]
     Active Substance: RANITIDINE HYDROCHLORIDE
     Indication: PROPHYLAXIS
     Dosage: 50 MG, ONCE; STRENGTH: 50MG/2ML
     Route: 042
     Dates: start: 20161110, end: 20161110
  11. LASIX [Concomitant]
     Active Substance: FUROSEMIDE
     Dosage: 20 MG, ONCE; STRENGTH: 20MG/2ML
     Route: 042
     Dates: start: 20161208, end: 20161208
  12. CENTRUM (MINERALS (UNSPECIFIED) (+) VITAMINS (UNSPECIFIED)) [Concomitant]
     Indication: VITAMIN SUPPLEMENTATION
     Dosage: 1 TABLET, DAILY
     Route: 048
     Dates: start: 20161110, end: 20170117
  13. EMEND (FOSAPREPITANT DIMEGLUMINE) [Suspect]
     Active Substance: FOSAPREPITANT DIMEGLUMINE
     Dosage: 150 MG, ONCE
     Route: 042
     Dates: start: 20161229, end: 20161229
  14. CISPLAN [Concomitant]
     Active Substance: CISPLATIN
     Dosage: 107 MG, ONCE; CYCLE 2 (STRENGTH: 50MG/100ML)
     Route: 042
     Dates: start: 20161208, end: 20161208
  15. CISPLAN [Concomitant]
     Active Substance: CISPLATIN
     Dosage: 100 MG, ONCE, CYCLE 3 (STRENGTH: 50MG/100ML)
     Route: 042
     Dates: start: 20161229, end: 20161229
  16. CAMPTO [Concomitant]
     Active Substance: IRINOTECAN
     Dosage: 100 MG, ONCE; CYCLE 2
     Route: 042
     Dates: start: 20161208, end: 20161208
  17. CURAN [Concomitant]
     Active Substance: RANITIDINE HYDROCHLORIDE
     Dosage: 50 MG, ONCE (STRENGTH: 50MG/2ML)
     Route: 042
     Dates: start: 20161208, end: 20161208
  18. DIABEX [Concomitant]
     Active Substance: METFORMIN HYDROCHLORIDE
     Indication: DIABETES MELLITUS
     Dosage: 250 MG, DAILY
     Route: 048
     Dates: start: 201609, end: 20161113
  19. CAMPTO [Concomitant]
     Active Substance: IRINOTECAN
     Dosage: 107 MG, ONCE;  CYCLE 3
     Route: 042
     Dates: start: 20161229, end: 20161229
  20. DEXAMETHASONE. [Concomitant]
     Active Substance: DEXAMETHASONE
     Dosage: 4 MG, TWICE DAILY
     Route: 048
     Dates: start: 20161209, end: 20161211
  21. DEXAMETHASONE. [Concomitant]
     Active Substance: DEXAMETHASONE
     Dosage: 4 MG, TWICE DAILY
     Route: 048
     Dates: start: 20161230, end: 20170101
  22. SANCUSO [Concomitant]
     Active Substance: GRANISETRON
     Dosage: 1 ^EA^, DAILY (PATCH: 80.2X66.6 MM2)
     Route: 062
     Dates: start: 20161207, end: 20161213
  23. LASIX [Concomitant]
     Active Substance: FUROSEMIDE
     Dosage: 20 MG, ONCE; STRENGTH: 20MG/2ML
     Route: 042
     Dates: start: 20161229, end: 20161229
  24. ZEMIGLO [Concomitant]
     Indication: DIABETES MELLITUS
     Dosage: 50 MG, DAILY
     Route: 048
     Dates: start: 20161114, end: 20170117
  25. EMEND (FOSAPREPITANT DIMEGLUMINE) [Suspect]
     Active Substance: FOSAPREPITANT DIMEGLUMINE
     Dosage: 150 MG, ONCE
     Route: 042
     Dates: start: 20161208, end: 20161208
  26. CAMPTO [Concomitant]
     Active Substance: IRINOTECAN
     Indication: RECTAL CANCER
     Dosage: 126 MG, ONCE; CYCLE 1
     Route: 042
     Dates: start: 20161110, end: 20161110
  27. CURAN [Concomitant]
     Active Substance: RANITIDINE HYDROCHLORIDE
     Dosage: 50 MG, TWICE DAILY; STRENGTH: 50MG/2ML
     Route: 042
     Dates: start: 20161118, end: 20161118
  28. CURAN [Concomitant]
     Active Substance: RANITIDINE HYDROCHLORIDE
     Dosage: 50 MG, ONCE; STRENGTH: 50MG/2ML
     Route: 042
     Dates: start: 20161229, end: 20161229

REACTIONS (10)
  - Hyperkalaemia [Recovered/Resolved]
  - Diarrhoea [Unknown]
  - Neutropenia [Recovered/Resolved]
  - Neutropenia [Recovered/Resolved]
  - Diarrhoea [Recovered/Resolved]
  - Nasopharyngitis [Recovered/Resolved]
  - Gastroenteritis [Recovered/Resolved]
  - Insomnia [Recovered/Resolved]
  - Diarrhoea [Recovered/Resolved]
  - Neutropenia [Recovered/Resolved]

NARRATIVE: CASE EVENT DATE: 20161110
